FAERS Safety Report 12167833 (Version 1)
Quarter: 2016Q1

REPORT INFORMATION
  Report Type: Spontaneous
  Country: US (occurrence: None)
  Receive Date: 20160309
  Receipt Date: 20160309
  Transmission Date: 20160526
  Serious: Yes (Disabling, Other)
  Sender: FDA-Public Use
  Company Number: None

PATIENT
  Age: 4 Year
  Sex: Male
  Weight: 20.87 kg

DRUGS (3)
  1. AMOXICILLIN 400MG/5ML SUS WEST WEST-WARD GENERIC DISPENED ML [Suspect]
     Active Substance: AMOXICILLIN
     Indication: SINUSITIS
     Route: 048
     Dates: start: 20160216, end: 20160221
  2. DIMATOP (CHILDENS) [Concomitant]
  3. AMOXICILLIN. [Concomitant]
     Active Substance: AMOXICILLIN

REACTIONS (7)
  - Abnormal behaviour [None]
  - Irritability [None]
  - Mood swings [None]
  - Crying [None]
  - Movement disorder [None]
  - Psychomotor hyperactivity [None]
  - Impulsive behaviour [None]

NARRATIVE: CASE EVENT DATE: 20160219
